FAERS Safety Report 5782265-7 (Version None)
Quarter: 2008Q2

REPORT INFORMATION
  Report Type: 
  Country: None (occurrence: None)
  Receive Date: 20080623
  Receipt Date: 20080605
  Transmission Date: 20081010
  Serious: No
  Sender: FDA-Public Use
  Company Number: US-PFIZER INC-2008026591

PATIENT
  Sex: Male
  Weight: 89.4 kg

DRUGS (2)
  1. CHANTIX [Suspect]
     Indication: TOBACCO ABUSE
  2. PREVACID [Concomitant]
     Route: 048

REACTIONS (1)
  - NO ADVERSE EVENT [None]
